FAERS Safety Report 18363020 (Version 3)
Quarter: 2020Q4

REPORT INFORMATION
  Report Type: Report from Study
  Country: None (occurrence: PR)
  Receive Date: 20201008
  Receipt Date: 20201119
  Transmission Date: 20210114
  Serious: Yes (Hospitalization)
  Sender: FDA-Public Use
  Company Number: PR-ABBVIE-20P-131-3593079-00

PATIENT
  Age: 16 Year
  Sex: Female

DRUGS (14)
  1. HYDROCORTISONE ACETATE. [Suspect]
     Active Substance: HYDROCORTISONE ACETATE
     Dosage: 1 APPLICATION
     Route: 061
     Dates: start: 20200813, end: 20200819
  2. TRIAMCINOLONE ACETONIDE. [Suspect]
     Active Substance: TRIAMCINOLONE ACETONIDE
     Dosage: 1 APPLICATION
     Route: 061
     Dates: start: 20200529, end: 20200619
  3. HYDROCORTISONE ACETATE. [Suspect]
     Active Substance: HYDROCORTISONE ACETATE
     Indication: DERMATITIS ATOPIC
     Dosage: 1 APPLICATION
     Route: 061
     Dates: start: 20200229, end: 20200303
  4. UPADACITINIB [Suspect]
     Active Substance: UPADACITINIB
     Indication: DERMATITIS ATOPIC
     Route: 048
     Dates: start: 20200207, end: 20200930
  5. SPINTEC [Concomitant]
     Indication: CONTRACEPTION
     Route: 048
     Dates: start: 20200119
  6. TRIAMCINOLONE ACETONIDE. [Suspect]
     Active Substance: TRIAMCINOLONE ACETONIDE
     Dosage: 1 APPLICATION
     Route: 061
     Dates: start: 20200624, end: 20200715
  7. TRIAMCINOLONE ACETONIDE. [Suspect]
     Active Substance: TRIAMCINOLONE ACETONIDE
     Dosage: 1 APPLICATION
     Route: 061
     Dates: start: 20200722, end: 20200812
  8. DIPHENHYDRAMINE. [Concomitant]
     Active Substance: DIPHENHYDRAMINE
     Indication: SINUSITIS
     Route: 048
     Dates: start: 20191113
  9. CETAPHIL [Concomitant]
     Indication: DRY SKIN PROPHYLAXIS
     Dosage: 1 APPLICATION
     Route: 061
     Dates: start: 20191231
  10. TRIAMCINOLONE ACETONIDE. [Suspect]
     Active Substance: TRIAMCINOLONE ACETONIDE
     Indication: DERMATITIS ATOPIC
     Dosage: 1 APPLICATION
     Route: 061
     Dates: start: 20200207, end: 20200228
  11. HYDROCORTISONE ACETATE. [Suspect]
     Active Substance: HYDROCORTISONE ACETATE
     Dosage: 1 APPLICATION
     Route: 061
     Dates: start: 20200620, end: 20200623
  12. HYDROCORTISONE ACETATE. [Suspect]
     Active Substance: HYDROCORTISONE ACETATE
     Dosage: 1 APPLICATION
     Route: 061
     Dates: start: 20200716, end: 20200721
  13. UPADACITINIB [Suspect]
     Active Substance: UPADACITINIB
     Route: 048
     Dates: start: 20201014
  14. LORATADINE. [Concomitant]
     Active Substance: LORATADINE
     Indication: SINUSITIS
     Route: 048
     Dates: start: 20191113

REACTIONS (1)
  - Pneumonia mycoplasmal [Recovered/Resolved]

NARRATIVE: CASE EVENT DATE: 20200930
